FAERS Safety Report 4479278-4 (Version None)
Quarter: 2004Q4

REPORT INFORMATION
  Report Type: 
  Country: None (occurrence: None)
  Receive Date: 20041019
  Receipt Date: 20041019
  Transmission Date: 20050328
  Serious: Yes (Hospitalization, Disabling)
  Sender: FDA-Public Use
  Company Number: None

PATIENT
  Age: 59 Year
  Sex: Female
  Weight: 65.7716 kg

DRUGS (1)
  1. LIPITOR [Suspect]
     Indication: BLOOD CHOLESTEROL INCREASED
     Dosage: 20 MG
     Dates: start: 20030601, end: 20031101

REACTIONS (5)
  - ASTHENIA [None]
  - DECREASED ACTIVITY [None]
  - FATIGUE [None]
  - INTESTINAL FUNCTIONAL DISORDER [None]
  - MYALGIA [None]
